FAERS Safety Report 12939424 (Version 8)
Quarter: 2017Q2

REPORT INFORMATION
  Report Type: Report from Study
  Country: NL (occurrence: NL)
  Receive Date: 20161115
  Receipt Date: 20170404
  Transmission Date: 20170830
  Serious: Yes (Hospitalization)
  Sender: FDA-Public Use
  Company Number: NL-ROCHE-1852855

PATIENT
  Age: 72 Year
  Sex: Male
  Weight: 83.1 kg

DRUGS (12)
  1. SALMETEROL [Concomitant]
     Active Substance: SALMETEROL
     Route: 065
     Dates: start: 20151201
  2. ATEZOLIZUMAB [Suspect]
     Active Substance: ATEZOLIZUMAB
     Indication: COLORECTAL CANCER METASTATIC
     Dosage: MOST RECENT DOSE 26/OCT/2016?FIXED DOSE OF 800 MG VIA 60-MINUTE IV INFUSION ON DAY 1 OF EVERY 2-WEEK
     Route: 042
     Dates: start: 20160928, end: 20161123
  3. ACETYLSALICYLZUUR [Concomitant]
     Active Substance: ASPIRIN
     Route: 065
     Dates: start: 20150729
  4. TIOTROPIUM [Concomitant]
     Active Substance: TIOTROPIUM
     Route: 065
     Dates: start: 20151201
  5. BEVACIZUMAB [Suspect]
     Active Substance: BEVACIZUMAB
     Indication: COLORECTAL CANCER METASTATIC
     Dosage: DATE OF MOST RECENT DOSE PRIOR TO THE EVENT ONSET: 26/OCT/2016 OF 400 MG?DOSE PER PROTOCOL
     Route: 042
     Dates: start: 20160512, end: 20161123
  6. LISINOPRIL. [Concomitant]
     Active Substance: LISINOPRIL
     Route: 065
     Dates: start: 20150729
  7. METOCLOPRAMIDE. [Concomitant]
     Active Substance: METOCLOPRAMIDE
     Indication: PROPHYLAXIS OF NAUSEA AND VOMITING
     Route: 065
     Dates: start: 20160512
  8. ONDANSETRON [Concomitant]
     Active Substance: ONDANSETRON
     Indication: PROPHYLAXIS OF NAUSEA AND VOMITING
     Route: 065
     Dates: start: 20160512
  9. HYDROCHLOORTHIAZIDE [Concomitant]
     Active Substance: HYDROCHLOROTHIAZIDE
     Route: 065
     Dates: start: 20150729
  10. LOPERAMIDE [Concomitant]
     Active Substance: LOPERAMIDE
     Indication: DIARRHOEA
     Route: 065
     Dates: start: 20160518
  11. CAPECITABINE. [Suspect]
     Active Substance: CAPECITABINE
     Indication: COLORECTAL CANCER METASTATIC
     Dosage: MOST RECENT DOSE OF 2000MG RECEIVED ON: 26/OCT/2016?GIVEN DAYS 1-14 EVERY 2 WEEKS FOLLOWED BY A ONE-
     Route: 048
     Dates: start: 20160928, end: 20161123
  12. SIMVASTATINE [Concomitant]
     Active Substance: SIMVASTATIN
     Route: 065
     Dates: start: 20150729

REACTIONS (1)
  - Restrictive cardiomyopathy [Recovered/Resolved]

NARRATIVE: CASE EVENT DATE: 20161108
